FAERS Safety Report 9406677 (Version 4)
Quarter: 2013Q4

REPORT INFORMATION
  Report Type: Spontaneous
  Country: US (occurrence: US)
  Receive Date: 20130718
  Receipt Date: 20131018
  Transmission Date: 20140711
  Serious: No
  Sender: FDA-Public Use
  Company Number: US-BIOGENIDEC-2013BI064531

PATIENT
  Age: 11 Year
  Sex: Male

DRUGS (6)
  1. TYSABRI [Suspect]
     Indication: MULTIPLE SCLEROSIS
     Route: 042
     Dates: start: 20130225, end: 20130412
  2. TYSABRI [Suspect]
     Indication: MULTIPLE SCLEROSIS
     Route: 042
     Dates: start: 20130315, end: 20130412
  3. BENADRYL [Concomitant]
     Indication: PAIN
  4. BENADRYL [Concomitant]
     Indication: CHEST PAIN
  5. TYLENOL [Concomitant]
     Indication: PAIN
  6. TYLENOL [Concomitant]
     Indication: CHEST PAIN

REACTIONS (4)
  - Off label use [Recovered/Resolved]
  - Pain [Recovered/Resolved]
  - Chest pain [Recovered/Resolved]
  - Multiple sclerosis [Not Recovered/Not Resolved]
